FAERS Safety Report 14484570 (Version 2)
Quarter: 2018Q1

REPORT INFORMATION
  Report Type: Report from Study
  Country: JP (occurrence: JP)
  Receive Date: 20180205
  Receipt Date: 20180209
  Transmission Date: 20180509
  Serious: Yes (Death)
  Sender: FDA-Public Use
  Company Number: JP-BAUSCH-BL-2018-002736

PATIENT
  Age: 82 Year
  Sex: Male

DRUGS (8)
  1. METHADERM [Concomitant]
     Indication: PEMPHIGUS
  2. METHADERM [Concomitant]
     Indication: PEMPHIGUS
     Route: 061
     Dates: start: 20160826, end: 20170814
  3. LULICON [Concomitant]
     Active Substance: LULICONAZOLE
     Indication: TINEA PEDIS
     Route: 061
     Dates: start: 20160719, end: 20170814
  4. CLENAFIN TOPICAL SOLUTION 10% FOR NAIL [Suspect]
     Active Substance: EFINACONAZOLE
     Indication: DERMATOPHYTOSIS OF NAIL
     Route: 061
     Dates: start: 20160719, end: 20170814
  5. NIZORAL [Concomitant]
     Active Substance: KETOCONAZOLE
     Indication: ECZEMA
     Route: 061
     Dates: end: 20170814
  6. METHADERM [Concomitant]
     Indication: ECZEMA
     Route: 061
     Dates: start: 20160729, end: 20170814
  7. HIRUDOID [Concomitant]
     Active Substance: GLYCOSAMINOGLYCANS
     Indication: PEMPHIGUS
     Route: 061
     Dates: start: 20160826, end: 20170814
  8. PREDNISOLONE. [Concomitant]
     Active Substance: PREDNISOLONE
     Indication: PEMPHIGUS
     Route: 048
     Dates: end: 20170814

REACTIONS (1)
  - Death [Fatal]

NARRATIVE: CASE EVENT DATE: 20170815
